FAERS Safety Report 10727317 (Version 2)
Quarter: 2015Q1

REPORT INFORMATION
  Report Type: Spontaneous
  Country: US (occurrence: US)
  Receive Date: 20150121
  Receipt Date: 20150223
  Transmission Date: 20150721
  Serious: No
  Sender: FDA-Public Use
  Company Number: US-009507513-1501USA006116

PATIENT
  Age: 65 Year
  Sex: Female
  Weight: 84.35 kg

DRUGS (1)
  1. MIRALAX [Suspect]
     Active Substance: POLYETHYLENE GLYCOL 3350
     Indication: CONSTIPATION
     Dosage: 17 G, ONCE
     Route: 048
     Dates: start: 20150112, end: 20150113

REACTIONS (3)
  - Throat tightness [Recovered/Resolved]
  - Dysgeusia [Recovered/Resolved]
  - Dry throat [Unknown]

NARRATIVE: CASE EVENT DATE: 20150112
